FAERS Safety Report 18383096 (Version 1)
Quarter: 2020Q4

REPORT INFORMATION
  Report Type: Report from Study
  Country: CA (occurrence: CA)
  Receive Date: 20201014
  Receipt Date: 20201014
  Transmission Date: 20210114
  Serious: Yes (Hospitalization)
  Sender: FDA-Public Use
  Company Number: CA-JNJFOC-20200921822

PATIENT
  Age: 71 Year
  Sex: Female

DRUGS (18)
  1. AZATHIOPRIN [Concomitant]
     Active Substance: AZATHIOPRINE
  2. FERROUS FUMARATE [Concomitant]
     Active Substance: FERROUS FUMARATE
  3. DEXTRAN [Concomitant]
     Active Substance: DEXTRAN
  4. ELIQUIS [Concomitant]
     Active Substance: APIXABAN
  5. PREDNISONE. [Concomitant]
     Active Substance: PREDNISONE
  6. ROSUVASTATIN. [Concomitant]
     Active Substance: ROSUVASTATIN
  7. ZOPICLONE [Concomitant]
     Active Substance: ZOPICLONE
  8. PANTOPRAZOLE [Concomitant]
     Active Substance: PANTOPRAZOLE
  9. TOBRAMYCIN. [Concomitant]
     Active Substance: TOBRAMYCIN
  10. SALBUTAMOL [Concomitant]
     Active Substance: ALBUTEROL
  11. BISOPROLOL [Concomitant]
     Active Substance: BISOPROLOL
  12. UPTRAVI [Suspect]
     Active Substance: SELEXIPAG
     Indication: PULMONARY HYPERTENSION
     Route: 065
     Dates: start: 20200817
  13. PERINDOPRIL [Concomitant]
     Active Substance: PERINDOPRIL
  14. HYDRALAZINE [Concomitant]
     Active Substance: HYDRALAZINE HYDROCHLORIDE
  15. CRESTOR [Concomitant]
     Active Substance: ROSUVASTATIN CALCIUM
  16. VENTOLIN [Concomitant]
     Active Substance: ALBUTEROL SULFATE
  17. LASIX [Concomitant]
     Active Substance: FUROSEMIDE
  18. REACTINE                           /00884302/ [Concomitant]
     Active Substance: CETIRIZINE HYDROCHLORIDE

REACTIONS (5)
  - Diarrhoea [Not Recovered/Not Resolved]
  - Transfusion [Recovered/Resolved]
  - Sleep disorder [Not Recovered/Not Resolved]
  - Abdominal distension [Not Recovered/Not Resolved]
  - Fatigue [Not Recovered/Not Resolved]

NARRATIVE: CASE EVENT DATE: 20200908
